FAERS Safety Report 20040136 (Version 1)
Quarter: 2021Q4

REPORT INFORMATION
  Report Type: Report from Study
  Country: IE (occurrence: IE)
  Receive Date: 20211106
  Receipt Date: 20211106
  Transmission Date: 20220303
  Serious: Yes (Death, Hospitalization, Other)
  Sender: FDA-Public Use
  Company Number: IE-TAKEDA-IE201703977

PATIENT
  Age: 11 Year
  Sex: Male

DRUGS (3)
  1. IDURSULFASE [Suspect]
     Active Substance: IDURSULFASE
     Indication: Mucopolysaccharidosis II
     Dosage: 0.5 MG/KG, 1X/WEEK
     Route: 041
     Dates: start: 20080410
  2. IDURSULFASE [Suspect]
     Active Substance: IDURSULFASE
     Dosage: 0.67 MILLIGRAM/KILOGRAM, 1/WEEK
     Route: 042
     Dates: start: 20080410
  3. IDURSULFASE [Suspect]
     Active Substance: IDURSULFASE
     Dosage: 0.5 MILLIGRAM
     Route: 042
     Dates: start: 20100817

REACTIONS (1)
  - Lower respiratory tract infection [Fatal]

NARRATIVE: CASE EVENT DATE: 20180220
